FAERS Safety Report 5610879-3 (Version None)
Quarter: 2008Q1

REPORT INFORMATION
  Report Type: 
  Country: None (occurrence: None)
  Receive Date: 20080201
  Receipt Date: 20080123
  Transmission Date: 20080703
  Serious: Yes (Disabling)
  Sender: FDA-Public Use
  Company Number: US-MERCK-0712USA08587

PATIENT
  Age: 60 Year
  Sex: Female

DRUGS (3)
  1. FOSAMAX [Suspect]
     Route: 048
     Dates: start: 19960101
  2. HYDROCHLOROTHIAZIDE [Concomitant]
     Route: 065
  3. VYTORIN [Concomitant]
     Route: 065

REACTIONS (4)
  - DYSPHAGIA [None]
  - DYSPNOEA [None]
  - SALIVARY HYPERSECRETION [None]
  - THROAT TIGHTNESS [None]
